FAERS Safety Report 6097486-6 (Version None)
Quarter: 2009Q1

REPORT INFORMATION
  Report Type: 
  Country: None (occurrence: None)
  Receive Date: 20090227
  Receipt Date: 20080728
  Transmission Date: 20090719
  Serious: No
  Sender: FDA-Public Use
  Company Number: A0740602A

PATIENT
  Age: 55 Year
  Sex: Female

DRUGS (4)
  1. IMITREX [Suspect]
     Indication: MIGRAINE
     Dosage: 6MG AS REQUIRED
     Route: 058
  2. IMITREX [Suspect]
     Route: 048
  3. ZOMIG [Concomitant]
  4. UNSPECIFIED MEDICATION [Concomitant]

REACTIONS (3)
  - DRUG INEFFECTIVE [None]
  - INJECTION SITE IRRITATION [None]
  - PRODUCT QUALITY ISSUE [None]
